FAERS Safety Report 4512581-8 (Version None)
Quarter: 2004Q4

REPORT INFORMATION
  Report Type: 
  Country: None (occurrence: None)
  Receive Date: 20041124
  Receipt Date: 20041109
  Transmission Date: 20050328
  Serious: Yes (Death)
  Sender: FDA-Public Use
  Company Number: A03200403896

PATIENT
  Age: 40 Year
  Sex: Female

DRUGS (2)
  1. DEMEROL [Suspect]
     Indication: PAIN
  2. ESCITALOPRAM [Suspect]

REACTIONS (3)
  - DRUG INTERACTION [None]
  - DRUG LEVEL INCREASED [None]
  - RESPIRATORY FAILURE [None]
